FAERS Safety Report 6370285-3 (Version None)
Quarter: 2009Q3

REPORT INFORMATION
  Report Type: 
  Country: None (occurrence: None)
  Receive Date: 20090921
  Receipt Date: 20090921
  Transmission Date: 20100115
  Serious: No
  Sender: FDA-Public Use
  Company Number: None

PATIENT
  Age: 69 Year
  Sex: Female
  Weight: 66 kg

DRUGS (1)
  1. FLUTICASONE PROPIONATE [Suspect]
     Indication: SINUSITIS
     Dosage: TWO SPRAYS INTO EACH NOSTRIL ONCE DAILY
     Dates: start: 20090831, end: 20090903

REACTIONS (3)
  - MEMORY IMPAIRMENT [None]
  - READING DISORDER [None]
  - VISION BLURRED [None]
